FAERS Safety Report 13928440 (Version 3)
Quarter: 2019Q4

REPORT INFORMATION
  Report Type: Report from Study
  Country: DE (occurrence: DE)
  Receive Date: 20170901
  Receipt Date: 20191107
  Transmission Date: 20200122
  Serious: No
  Sender: FDA-Public Use
  Company Number: DE-JNJFOC-20170430632

PATIENT
  Age: 55 Year
  Sex: Female

DRUGS (1)
  1. STELARA [Suspect]
     Active Substance: USTEKINUMAB
     Indication: PSORIATIC ARTHROPATHY
     Route: 058
     Dates: start: 20161121

REACTIONS (5)
  - Vitamin D deficiency [Not Recovered/Not Resolved]
  - Hypertension [Not Recovered/Not Resolved]
  - Nasopharyngitis [Recovered/Resolved]
  - Hepatic enzyme increased [Not Recovered/Not Resolved]
  - Tenosynovitis stenosans [Recovered/Resolved]

NARRATIVE: CASE EVENT DATE: 20170224
